FAERS Safety Report 23703660 (Version 1)
Quarter: 2024Q2

REPORT INFORMATION
  Report Type: Spontaneous
  Country: US (occurrence: US)
  Receive Date: 20240403
  Receipt Date: 20240403
  Transmission Date: 20240716
  Serious: Yes (Other)
  Sender: FDA-Public Use
  Company Number: US-PFIZER INC-202400076442

PATIENT
  Age: 68 Year
  Sex: Female

DRUGS (2)
  1. IBRANCE [Suspect]
     Active Substance: PALBOCICLIB
     Dosage: 100 MG
     Dates: end: 202403
  2. FULVESTRANT [Suspect]
     Active Substance: FULVESTRANT
     Dosage: UNK
     Dates: end: 202403

REACTIONS (8)
  - Haemoglobin decreased [Not Recovered/Not Resolved]
  - Myocardial infarction [Unknown]
  - Loss of consciousness [Unknown]
  - Coma [Unknown]
  - Craniofacial fracture [Unknown]
  - Haemorrhagic disorder [Unknown]
  - Peroneal nerve palsy [Unknown]
  - Cardiovascular disorder [Unknown]

NARRATIVE: CASE EVENT DATE: 20240101
